FAERS Safety Report 22271472 (Version 18)
Quarter: 2024Q2

REPORT INFORMATION
  Report Type: Report from Study
  Country: BE (occurrence: BE)
  Receive Date: 20230501
  Receipt Date: 20240625
  Transmission Date: 20240716
  Serious: Yes (Other)
  Sender: FDA-Public Use
  Company Number: BE-JNJFOC-20230461559

PATIENT
  Age: 55 Year
  Sex: Female

DRUGS (29)
  1. SPRAVATO [Suspect]
     Active Substance: ESKETAMINE
     Indication: Depression
     Dosage: 56 MG (2 DEVICES)
     Dates: start: 20230412, end: 20230412
  2. SPRAVATO [Suspect]
     Active Substance: ESKETAMINE
     Dosage: 56 MG (2 DEVICES)
     Dates: start: 20230417, end: 20230417
  3. SPRAVATO [Suspect]
     Active Substance: ESKETAMINE
     Dosage: 84 MG (3 DEVICES)
     Dates: start: 20230420, end: 20230420
  4. SPRAVATO [Suspect]
     Active Substance: ESKETAMINE
     Dosage: 84 MG (3 DEVICES)
     Dates: start: 20230424, end: 20230424
  5. SPRAVATO [Suspect]
     Active Substance: ESKETAMINE
     Dosage: 84 MG (3 DEVICES)
     Dates: start: 20230427, end: 20230427
  6. SPRAVATO [Suspect]
     Active Substance: ESKETAMINE
     Dosage: 84 MG (3 DEVICES)
     Dates: start: 20230502, end: 20230502
  7. SPRAVATO [Suspect]
     Active Substance: ESKETAMINE
     Dosage: 84 MG (3 DEVICES)
     Dates: start: 20230505, end: 20230505
  8. SPRAVATO [Suspect]
     Active Substance: ESKETAMINE
     Dosage: 84 MG (3 DEVICES)
     Dates: start: 20230508, end: 20230508
  9. SPRAVATO [Suspect]
     Active Substance: ESKETAMINE
     Dosage: 84 MG (3 DEVICES)
     Dates: start: 20230511, end: 20230511
  10. SPRAVATO [Suspect]
     Active Substance: ESKETAMINE
     Dosage: 84 MG (3 DEVICES)
     Dates: start: 20230515, end: 20230515
  11. SPRAVATO [Suspect]
     Active Substance: ESKETAMINE
     Dosage: 84 MG (3 DEVICES)
     Dates: start: 20230518, end: 20230518
  12. SPRAVATO [Suspect]
     Active Substance: ESKETAMINE
     Dosage: 84 MG (3 DEVICES)
     Dates: start: 20230522, end: 20230522
  13. SPRAVATO [Suspect]
     Active Substance: ESKETAMINE
     Dosage: 84 MG (3 DEVICES)
     Dates: start: 20230525, end: 20230525
  14. SPRAVATO [Suspect]
     Active Substance: ESKETAMINE
     Dosage: 84 MG (3 DEVICES)
     Dates: start: 20230529, end: 20230529
  15. SPRAVATO [Suspect]
     Active Substance: ESKETAMINE
     Dosage: 84 MG (3 DEVICES)
     Dates: start: 20230601, end: 20230601
  16. SPRAVATO [Suspect]
     Active Substance: ESKETAMINE
     Dosage: 84 MG (3 DEVICES)
     Dates: start: 20230605, end: 20230605
  17. SPRAVATO [Suspect]
     Active Substance: ESKETAMINE
     Dosage: 84 MG (3 DEVICES)
     Dates: start: 20230612, end: 20230612
  18. SPRAVATO [Suspect]
     Active Substance: ESKETAMINE
     Dosage: 84 MG (3 DEVICES)
     Dates: start: 20230619, end: 20230619
  19. SPRAVATO [Suspect]
     Active Substance: ESKETAMINE
     Dosage: 84 MG (3 DEVICES)
     Dates: start: 20230626, end: 20230626
  20. SPRAVATO [Suspect]
     Active Substance: ESKETAMINE
     Dosage: 84 MG (3 DEVICES)
     Dates: start: 20230703, end: 20230703
  21. SPRAVATO [Suspect]
     Active Substance: ESKETAMINE
     Dosage: 84 MG (3 DEVICES)
     Dates: start: 20230710, end: 20230710
  22. SPRAVATO [Suspect]
     Active Substance: ESKETAMINE
     Dosage: 84 MG (3 DEVICES)
     Dates: start: 20230717, end: 20230717
  23. SPRAVATO [Suspect]
     Active Substance: ESKETAMINE
     Dosage: 84 MG (3 DEVICES)
     Dates: start: 20230724, end: 20230724
  24. SPRAVATO [Suspect]
     Active Substance: ESKETAMINE
     Dosage: 84 MG (3 DEVICES)
     Dates: start: 20230731, end: 20230731
  25. SPRAVATO [Suspect]
     Active Substance: ESKETAMINE
     Dosage: 84 MG (3 DEVICES)
     Dates: start: 20230807, end: 20230807
  26. SPRAVATO [Suspect]
     Active Substance: ESKETAMINE
     Dosage: 84 MG (3 DEVICES)
     Dates: start: 20230814, end: 20230814
  27. SPRAVATO [Suspect]
     Active Substance: ESKETAMINE
     Dosage: 84 MG (3 DEVICES)
     Dates: start: 20230821, end: 20230821
  28. SPRAVATO [Suspect]
     Active Substance: ESKETAMINE
     Dosage: 84 MG (3 DEVICES)
     Dates: start: 20230828, end: 20230828
  29. SPRAVATO [Suspect]
     Active Substance: ESKETAMINE
     Dosage: 84 MG (3 DEVICES)
     Dates: start: 20230904, end: 20230904

REACTIONS (7)
  - Hallucination [Recovered/Resolved]
  - Diarrhoea [Recovered/Resolved]
  - Fatigue [Recovered/Resolved]
  - Dissociation [Recovered/Resolved]
  - Anxiety [Recovered/Resolved]
  - Muscle spasms [Recovered/Resolved]
  - Headache [Recovered/Resolved]

NARRATIVE: CASE EVENT DATE: 20230417
